FAERS Safety Report 21433607 (Version 1)
Quarter: 2022Q4

REPORT INFORMATION
  Report Type: Spontaneous
  Country: US (occurrence: US)
  Receive Date: 20221010
  Receipt Date: 20221010
  Transmission Date: 20230112
  Serious: No
  Sender: FDA-Public Use
  Company Number: US-CHIESI-2021CHF04977

PATIENT
  Sex: Female
  Weight: 59 kg

DRUGS (9)
  1. FERRIPROX [Suspect]
     Active Substance: DEFERIPRONE
     Indication: Hereditary disorder
     Dosage: 2000 MILLIGRAM, BID
     Route: 048
     Dates: start: 20210916
  2. FERRIPROX [Suspect]
     Active Substance: DEFERIPRONE
     Indication: Off label use
  3. CYANOCOBALAMIN [Concomitant]
     Active Substance: CYANOCOBALAMIN
     Indication: Product used for unknown indication
     Dosage: UNK
  4. LISINOPRIL [Concomitant]
     Active Substance: LISINOPRIL
     Indication: Product used for unknown indication
     Dosage: UNK
  5. HYDROXYZINE HYDROCHLORIDE [Concomitant]
     Active Substance: HYDROXYZINE HYDROCHLORIDE
     Indication: Product used for unknown indication
     Dosage: UNK
  6. SERTRALINE HYDROCHLORIDE [Concomitant]
     Active Substance: SERTRALINE HYDROCHLORIDE
     Indication: Product used for unknown indication
     Dosage: UNK
  7. FLAXSEED [Concomitant]
     Active Substance: FLAX SEED
     Indication: Product used for unknown indication
     Dosage: UNK
  8. VITAMIN D NOS [Concomitant]
     Active Substance: VITAMIN D NOS
     Indication: Product used for unknown indication
     Dosage: UNK
  9. CALCIUM [Concomitant]
     Active Substance: CALCIUM
     Indication: Product used for unknown indication

REACTIONS (4)
  - White blood cell count increased [Unknown]
  - Serum ferritin increased [Unknown]
  - Nasopharyngitis [Recovered/Resolved]
  - Off label use [Not Recovered/Not Resolved]

NARRATIVE: CASE EVENT DATE: 20210101
